FAERS Safety Report 8097564-6 (Version None)
Quarter: 2012Q1

REPORT INFORMATION
  Report Type: 
  Country: None (occurrence: None)
  Receive Date: 20120128
  Receipt Date: 20110711
  Transmission Date: 20120608
  Serious: No
  Sender: FDA-Public Use
  Company Number: US-ABBOTT-06P-163-0338105-00

PATIENT
  Sex: Male
  Weight: 83.99 kg

DRUGS (6)
  1. DILTIAZEM HCL [Concomitant]
     Indication: ARTERIOSPASM CORONARY
  2. SYNTHROID [Concomitant]
     Indication: HYPOTHYROIDISM
  3. HUMIRA [Suspect]
     Indication: PSORIATIC ARTHROPATHY
  4. LISINOPRIL [Concomitant]
     Indication: HYPERTENSION
  5. METHOTREXATE [Concomitant]
     Indication: PSORIATIC ARTHROPATHY
     Dates: start: 20060101, end: 20080101
  6. HUMIRA [Suspect]
     Indication: RHEUMATOID ARTHRITIS
     Route: 058
     Dates: start: 20060501

REACTIONS (2)
  - CONTUSION [None]
  - RASH [None]
